FAERS Safety Report 5428231-2 (Version None)
Quarter: 2007Q3

REPORT INFORMATION
  Report Type: 
  Country: None (occurrence: None)
  Receive Date: 20070828
  Receipt Date: 20070816
  Transmission Date: 20080115
  Serious: Yes (Hospitalization)
  Sender: FDA-Public Use
  Company Number: FR-PFIZER INC-2007068226

PATIENT
  Sex: Male

DRUGS (4)
  1. ZARONTIN [Suspect]
     Indication: EPILEPSY
     Dosage: TEXT:3 DF
     Route: 048
  2. DEPAKENE [Concomitant]
     Indication: EPILEPSY
     Dosage: TEXT:4 DF
  3. COMBIVIR [Concomitant]
     Indication: HIV INFECTION
  4. VIRAMUNE [Concomitant]
     Indication: HIV INFECTION

REACTIONS (1)
  - PRIAPISM [None]
